FAERS Safety Report 17479401 (Version 1)
Quarter: 2020Q1

REPORT INFORMATION
  Report Type: Spontaneous
  Country: CA (occurrence: CA)
  Receive Date: 20200228
  Receipt Date: 20200228
  Transmission Date: 20200409
  Serious: Yes (Death)
  Sender: FDA-Public Use
  Company Number: CA-PFIZER INC-2020090667

PATIENT
  Age: 77 Year
  Sex: Female

DRUGS (5)
  1. SULCRATE PLUS [Concomitant]
  2. VIT D [Concomitant]
     Active Substance: VITAMIN D NOS
     Dosage: 1000 IU, UNK
  3. CALCIUM [Concomitant]
     Active Substance: CALCIUM
  4. IBRANCE [Suspect]
     Active Substance: PALBOCICLIB
     Dosage: 125 MG, CYCLIC (1 CAPSULE ONCE DAILY FOR 21 DAYS IN A ROW, STOP FOR 7 DAYS)
     Route: 048
     Dates: start: 20191003
  5. IMODIUM [Concomitant]
     Active Substance: LOPERAMIDE HYDROCHLORIDE

REACTIONS (1)
  - Death [Fatal]

NARRATIVE: CASE EVENT DATE: 20200208
